FAERS Safety Report 6243349-2 (Version None)
Quarter: 2009Q2

REPORT INFORMATION
  Report Type: 
  Country: None (occurrence: None)
  Receive Date: 20090624
  Receipt Date: 20090616
  Transmission Date: 20091009
  Serious: Yes (Hospitalization)
  Sender: FDA-Public Use
  Company Number: FR-MERCK-0906FRA00066

PATIENT
  Age: 28 Year
  Sex: Female

DRUGS (5)
  1. PRIMAXIN [Suspect]
     Route: 042
     Dates: start: 20080916
  2. TRIMEBUTINE MALEATE [Concomitant]
     Indication: ABDOMINAL PAIN
     Route: 065
  3. TRIMEBUTINE MALEATE [Concomitant]
     Indication: DIARRHOEA
     Route: 065
  4. RACECADOTRIL [Concomitant]
     Indication: ABDOMINAL PAIN
     Route: 065
  5. RACECADOTRIL [Concomitant]
     Indication: DIARRHOEA
     Route: 065

REACTIONS (1)
  - RENAL TUBULAR DISORDER [None]
